FAERS Safety Report 10377672 (Version 1)
Quarter: 2014Q3

REPORT INFORMATION
  Report Type: Report from Study
  Country: US (occurrence: US)
  Receive Date: 20140812
  Receipt Date: 20140812
  Transmission Date: 20150326
  Serious: Yes (Other)
  Sender: FDA-Public Use
  Company Number: PHEH2014US015803

PATIENT
  Sex: Female

DRUGS (2)
  1. CIPRO [Concomitant]
     Active Substance: CIPROFLOXACIN HYDROCHLORIDE
     Dosage: UKN
  2. TOBI [Suspect]
     Active Substance: TOBRAMYCIN
     Indication: BRONCHIECTASIS
     Dosage: 300 MG, TWICE A DAY
     Route: 055

REACTIONS (7)
  - Bronchiectasis [Unknown]
  - Dyspepsia [Unknown]
  - Gastrointestinal disorder [Unknown]
  - Haemoptysis [Unknown]
  - Condition aggravated [Unknown]
  - Pseudomonas infection [Unknown]
  - Pyrexia [Unknown]
